FAERS Safety Report 19974300 (Version 2)
Quarter: 2021Q4

REPORT INFORMATION
  Report Type: Report from Study
  Country: FR (occurrence: FR)
  Receive Date: 20211020
  Receipt Date: 20211028
  Transmission Date: 20220303
  Serious: Yes (Other)
  Sender: FDA-Public Use
  Company Number: FR-MERCK HEALTHCARE KGAA-9263572

PATIENT
  Age: 84 Year
  Sex: Female
  Weight: 67 kg

DRUGS (1)
  1. TEPOTINIB [Suspect]
     Active Substance: TEPOTINIB
     Indication: Lung neoplasm malignant
     Route: 048
     Dates: start: 20210708

REACTIONS (1)
  - Lymphoedema [Not Recovered/Not Resolved]

NARRATIVE: CASE EVENT DATE: 20210801
